FAERS Safety Report 4705955-3 (Version None)
Quarter: 2005Q2

REPORT INFORMATION
  Report Type: 
  Country: None (occurrence: None)
  Receive Date: 20050628
  Receipt Date: 20041029
  Transmission Date: 20051028
  Serious: Yes (Life-Threatening, Hospitalization)
  Sender: FDA-Public Use
  Company Number: VISP-PR-0411S-0420

PATIENT
  Age: 49 Year
  Sex: Female
  Weight: 61.68 kg

DRUGS (1)
  1. VISIPAQUE [Suspect]
     Indication: CAROTID ARTERY OCCLUSION
     Dosage: SINGLE DOSE, I.A.
     Route: 013
     Dates: start: 20041021, end: 20041021

REACTIONS (1)
  - CONVULSION [None]
